FAERS Safety Report 4543147-1 (Version None)
Quarter: 2004Q4

REPORT INFORMATION
  Report Type: 
  Country: None (occurrence: None)
  Receive Date: 20041230
  Receipt Date: 20041230
  Transmission Date: 20050328
  Serious: Yes (Hospitalization)
  Sender: FDA-Public Use
  Company Number: None

PATIENT
  Age: 82 Year
  Sex: Female
  Weight: 54.4316 kg

DRUGS (6)
  1. GEMCITABINE [Suspect]
     Indication: PANCREATIC CARCINOMA
     Dosage: 185 MG Q2 WEEKS INTRAVENOUS
     Route: 042
     Dates: start: 20041213, end: 20041214
  2. IRINOTECAN HCL [Suspect]
     Indication: PANCREATIC CARCINOMA
     Dosage: 160 MG Q2 WEEKS INTRAVENOUS
     Route: 042
     Dates: start: 20041214, end: 20041215
  3. DURAGESIC [Concomitant]
  4. FOSFOMAX [Concomitant]
  5. VIOKASE [Concomitant]
  6. COUMADIN [Concomitant]

REACTIONS (2)
  - ASTHENIA [None]
  - FATIGUE [None]
